FAERS Safety Report 7577412-0 (Version None)
Quarter: 2011Q2

REPORT INFORMATION
  Report Type: 
  Country: None (occurrence: None)
  Receive Date: 20110621
  Receipt Date: 20110607
  Transmission Date: 20111010
  Serious: Yes (Hospitalization)
  Sender: FDA-Public Use
  Company Number: GB-1185916

PATIENT
  Age: 64 Year
  Sex: Male

DRUGS (4)
  1. AZOPT [Suspect]
     Dosage: (1 GTT BID OS OPHTHALMIC)
     Route: 047
     Dates: start: 20100306, end: 20110224
  2. WARFARIN SODIUM [Concomitant]
  3. SOTALOL HCL [Concomitant]
  4. LUMIGAN [Concomitant]

REACTIONS (9)
  - FATIGUE [None]
  - JOINT SWELLING [None]
  - ERYTHEMA [None]
  - RASH [None]
  - FEELING COLD [None]
  - ADVERSE EVENT [None]
  - DYSPNOEA [None]
  - SCROTAL OEDEMA [None]
  - OEDEMA PERIPHERAL [None]
